FAERS Safety Report 21726577 (Version 2)
Quarter: 2023Q4

REPORT INFORMATION
  Report Type: Spontaneous
  Country: FR (occurrence: FR)
  Receive Date: 20221214
  Receipt Date: 20231116
  Transmission Date: 20240110
  Serious: Yes (Death, Other)
  Sender: FDA-Public Use
  Company Number: None

PATIENT
  Age: 60 Year
  Sex: Male

DRUGS (11)
  1. BORTEZOMIB [Suspect]
     Active Substance: BORTEZOMIB
     Indication: Plasma cell myeloma refractory
     Dosage: FRONT-LINE THERAPY, TRIPLET BORTEZOMIB LENALIDOMIDE
  2. CYCLOPHOSPHAMIDE [Suspect]
     Active Substance: CYCLOPHOSPHAMIDE
     Indication: Plasma cell myeloma
  3. LENALIDOMIDE [Suspect]
     Active Substance: LENALIDOMIDE
     Indication: Plasma cell myeloma
     Dosage: FRONT-LINE THERAPY, TRIPLET BORTEZOMIB LENALIDOMIDE
  4. CARFILZOMIB [Suspect]
     Active Substance: CARFILZOMIB
     Indication: Plasma cell myeloma
     Dosage: TRIPLET COMBINATION CARFILZOMIB-POMALIDOMIDE DEXAMETHASONE (KPD) CYCLIC (2 CYCLES)
  5. DARATUMUMAB [Suspect]
     Active Substance: DARATUMUMAB
     Indication: Plasma cell myeloma
  6. DABRAFENIB [Suspect]
     Active Substance: DABRAFENIB
     Indication: Plasma cell myeloma
     Dosage: BRAF INHIBITOR
  7. DEXAMETHASONE [Suspect]
     Active Substance: DEXAMETHASONE
     Indication: Plasma cell myeloma
     Dosage: FRONT-LINE THERAPY, TRIPLET BORTEZOMIB LENALIDOMIDE DEXAMETHASONE (VRD),?CYCLIC (3 CYCLES)
  8. PANOBINOSTAT [Suspect]
     Active Substance: PANOBINOSTAT
     Indication: Plasma cell myeloma refractory
  9. POMALIDOMIDE [Suspect]
     Active Substance: POMALIDOMIDE
     Indication: Plasma cell myeloma
     Dosage: TRIPLET COMBINATION CARFILZOMIB-POMALIDOMIDE
  10. TRAMETINIB [Suspect]
     Active Substance: TRAMETINIB
     Indication: Plasma cell myeloma
     Dosage: MEK INHIBITOR
  11. DEXAMETHASONE [Suspect]
     Active Substance: DEXAMETHASONE
     Indication: Plasma cell myeloma
     Dosage: TRIPLET COMBINATION CARFILZOMIB-POMALIDOMIDE DEXAMETHASONE (KPD)

REACTIONS (2)
  - Plasma cell myeloma [Fatal]
  - Drug ineffective [Unknown]
